FAERS Safety Report 7460249-0 (Version None)
Quarter: 2011Q2

REPORT INFORMATION
  Report Type: 
  Country: None (occurrence: None)
  Receive Date: 20110505
  Receipt Date: 20110504
  Transmission Date: 20111010
  Serious: Yes (Disabling)
  Sender: FDA-Public Use
  Company Number: IT-ROCHE-774960

PATIENT
  Sex: Male

DRUGS (2)
  1. PEGASYS [Concomitant]
     Dates: start: 20091101, end: 20100901
  2. COPEGUS [Suspect]
     Route: 048
     Dates: start: 20091101, end: 20100901

REACTIONS (1)
  - SPONDYLITIS [None]
